FAERS Safety Report 8358070-4 (Version None)
Quarter: 2012Q2

REPORT INFORMATION
  Report Type: 
  Country: None (occurrence: None)
  Receive Date: 20120514
  Receipt Date: 20120508
  Transmission Date: 20120825
  Serious: Yes (Death, Other)
  Sender: FDA-Public Use
  Company Number: US-CELGENEUS-163-20785-12050845

PATIENT
  Age: 65 Year
  Sex: Male

DRUGS (1)
  1. THALOMID [Suspect]
     Indication: MYELOFIBROSIS
     Route: 048

REACTIONS (5)
  - HEPATOMEGALY [None]
  - EXTRAMEDULLARY HAEMOPOIESIS [None]
  - LYMPHADENOPATHY [None]
  - MULTI-ORGAN FAILURE [None]
  - ABDOMINAL PAIN [None]
